FAERS Safety Report 13532178 (Version 2)
Quarter: 2017Q2

REPORT INFORMATION
  Report Type: Spontaneous
  Country: ES (occurrence: ES)
  Receive Date: 20170510
  Receipt Date: 20170516
  Transmission Date: 20170830
  Serious: Yes (Other)
  Sender: FDA-Public Use
  Company Number: ES-PFIZER INC-2017191244

PATIENT
  Age: 72 Year
  Sex: Female

DRUGS (5)
  1. TARDYFERON [Concomitant]
     Active Substance: FERROUS SULFATE
     Dosage: UNK
  2. TOVIAZ [Suspect]
     Active Substance: FESOTERODINE FUMARATE
     Indication: URINARY INCONTINENCE
     Dosage: 4 MG, UNK
     Dates: start: 201704, end: 2017
  3. LEXATIN /00424801/ [Concomitant]
     Active Substance: BROMAZEPAM
     Dosage: UNK
  4. VALIUM [Concomitant]
     Active Substance: DIAZEPAM
     Dosage: UNK
  5. ZALDIAR [Concomitant]
     Active Substance: ACETAMINOPHEN\TRAMADOL HYDROCHLORIDE

REACTIONS (7)
  - Bone pain [Recovered/Resolved]
  - Fatigue [Recovered/Resolved]
  - Nervousness [Recovered/Resolved]
  - Diarrhoea [Recovered/Resolved]
  - Myocardial infarction [Recovered/Resolved]
  - Vomiting [Recovered/Resolved]
  - Feeling abnormal [Recovered/Resolved]

NARRATIVE: CASE EVENT DATE: 201704
